FAERS Safety Report 7312060-9 (Version None)
Quarter: 2011Q1

REPORT INFORMATION
  Report Type: 
  Country: None (occurrence: None)
  Receive Date: 20110224
  Receipt Date: 20100728
  Transmission Date: 20110831
  Serious: No
  Sender: FDA-Public Use
  Company Number: US-BRISTOL-MYERS SQUIBB COMPANY-15211196

PATIENT
  Age: 70 Year
  Sex: Male

DRUGS (2)
  1. ERBITUX [Suspect]
     Indication: LUNG NEOPLASM MALIGNANT
     Route: 042
     Dates: start: 20100714, end: 20100721
  2. TAXOL [Suspect]
     Indication: LUNG NEOPLASM MALIGNANT
     Dosage: 2ND DOSE HELD ON 21JUL2010
     Route: 042
     Dates: start: 20100714

REACTIONS (2)
  - EYE SWELLING [None]
  - MALAISE [None]
